FAERS Safety Report 8282240-7 (Version None)
Quarter: 2012Q2

REPORT INFORMATION
  Report Type: 
  Country: None (occurrence: None)
  Receive Date: 20120413
  Receipt Date: 20120405
  Transmission Date: 20120825
  Serious: No
  Sender: FDA-Public Use
  Company Number: US-BAYER-201031614NA

PATIENT
  Age: 40 Year
  Sex: Female
  Weight: 126.98 kg

DRUGS (14)
  1. MECLIZINE [Concomitant]
  2. GEODON [Concomitant]
  3. FLUOXETINE [Concomitant]
  4. OXCARBAZEPINE [Concomitant]
  5. ZIPRASIDONE HYDROCHLORIDE [Concomitant]
  6. LOVENOX [Concomitant]
  7. XENICAL [Concomitant]
  8. PROZAC [Concomitant]
  9. YAZ [Suspect]
     Indication: PREMENSTRUAL SYNDROME
     Dosage: UNK
     Route: 048
     Dates: start: 20080508, end: 20080702
  10. NEXIUM [Concomitant]
  11. DETROL [Concomitant]
  12. AMBIEN [Concomitant]
  13. YASMIN [Suspect]
     Indication: PREMENSTRUAL SYNDROME
     Route: 048
     Dates: start: 20080508, end: 20080701
  14. ENALAPRIL MALEATE [Concomitant]

REACTIONS (5)
  - THROMBOPHLEBITIS SUPERFICIAL [None]
  - THROMBOPHLEBITIS [None]
  - CHEST PAIN [None]
  - PAIN IN EXTREMITY [None]
  - PAIN [None]
